FAERS Safety Report 23706680 (Version 1)
Quarter: 2024Q2

REPORT INFORMATION
  Report Type: Spontaneous
  Country: US (occurrence: None)
  Receive Date: 20240403
  Receipt Date: 20240403
  Transmission Date: 20240716
  Serious: Yes (Death)
  Sender: FDA-Public Use
  Company Number: None

PATIENT
  Age: 81 Year
  Sex: Male

DRUGS (9)
  1. PIRFENIDONE [Suspect]
     Active Substance: PIRFENIDONE
     Indication: Idiopathic pulmonary fibrosis
     Dosage: 801MG TID ORAL?
     Route: 048
     Dates: start: 20210401, end: 20240322
  2. METOCLOPRAMIDE [Concomitant]
     Active Substance: METOCLOPRAMIDE
  3. HALOPERIDOL [Concomitant]
     Active Substance: HALOPERIDOL
  4. PANTOPRAZOLE [Concomitant]
     Active Substance: PANTOPRAZOLE
  5. ATORVASTATIN [Concomitant]
     Active Substance: ATORVASTATIN
  6. FLONASE [Concomitant]
     Active Substance: FLUTICASONE PROPIONATE
  7. APIXABAN [Concomitant]
     Active Substance: APIXABAN
  8. BENZONATATE [Concomitant]
     Active Substance: BENZONATATE
  9. GUAIFENESIN [Concomitant]
     Active Substance: GUAIFENESIN

REACTIONS (2)
  - Acute respiratory failure [None]
  - Hypoxia [None]

NARRATIVE: CASE EVENT DATE: 20240322
